FAERS Safety Report 22226379 (Version 1)
Quarter: 2023Q2

REPORT INFORMATION
  Report Type: Spontaneous
  Country: US (occurrence: US)
  Receive Date: 20230419
  Receipt Date: 20230419
  Transmission Date: 20230721
  Serious: Yes (Death, Other)
  Sender: FDA-Public Use
  Company Number: US-AMGEN-USASP2023064310

PATIENT

DRUGS (5)
  1. BEVACIZUMAB [Suspect]
     Active Substance: BEVACIZUMAB
     Indication: Brain stem glioma
     Dosage: 15 MILLIGRAM PER KILOGRAM
     Route: 013
  2. BEVACIZUMAB [Suspect]
     Active Substance: BEVACIZUMAB
     Indication: Glioma
  3. CETUXIMAB [Concomitant]
     Active Substance: CETUXIMAB
     Indication: Brain stem glioma
     Dosage: 200 MILLIGRAM PER SQUARE METRE
     Route: 013
  4. CETUXIMAB [Concomitant]
     Active Substance: CETUXIMAB
     Indication: Glioma
  5. MANNITOL [Concomitant]
     Active Substance: MANNITOL
     Indication: Blood brain barrier disruption therapy
     Dosage: 12.5CC OF 20% MANNITOL
     Route: 013

REACTIONS (6)
  - Death [Fatal]
  - Glioma [Unknown]
  - Brain stem glioma [Unknown]
  - Therapy partial responder [Unknown]
  - Rash [Unknown]
  - Epistaxis [Unknown]
